FAERS Safety Report 10246036 (Version 2)
Quarter: 2015Q2

REPORT INFORMATION
  Report Type: Spontaneous
  Country: US (occurrence: US)
  Receive Date: 20140619
  Receipt Date: 20150610
  Transmission Date: 20150821
  Serious: No
  Sender: FDA-Public Use
  Company Number: US-009507513-1406USA002066

PATIENT
  Age: 68 Year
  Sex: Female

DRUGS (1)
  1. POSACONAZOLE [Suspect]
     Active Substance: POSACONAZOLE
     Indication: SALVAGE THERAPY
     Dosage: 400 MG, BID
     Route: 048

REACTIONS (3)
  - Colour blindness acquired [Recovered/Resolved]
  - Therapy responder [Unknown]
  - Dizziness [Recovered/Resolved]
